FAERS Safety Report 21894079 (Version 1)
Quarter: 2023Q1

REPORT INFORMATION
  Report Type: Spontaneous
  Country: US (occurrence: US)
  Receive Date: 20230121
  Receipt Date: 20230121
  Transmission Date: 20230418
  Serious: No
  Sender: FDA-Public Use
  Company Number: US-AUROBINDO-AUR-APL-2022-041219

PATIENT
  Sex: Male
  Weight: 92.9 kg

DRUGS (1)
  1. CLOZAPINE [Suspect]
     Active Substance: CLOZAPINE
     Indication: Product used for unknown indication
     Dosage: UNK, DAILY,1 TABLET PER ORAL IN AM DAILY
     Route: 048
     Dates: start: 20220330, end: 20220713

REACTIONS (1)
  - Product dose omission issue [Recovered/Resolved]
